FAERS Safety Report 8966718 (Version 1)
Quarter: 2012Q4

REPORT INFORMATION
  Report Type: Spontaneous
  Country: GB (occurrence: None)
  Receive Date: 20121206
  Receipt Date: 20121206
  Transmission Date: 20130627
  Serious: Yes (Death, Other)
  Sender: FDA-Public Use
  Company Number: EUS-201200938

PATIENT
  Age: 25 Year
  Sex: Male

DRUGS (2)
  1. ASPARAGINASE [Suspect]
     Indication: LYMPHOCYTIC LEUKAEMIA
     Dosage: 600 IU (600 IU, 1 in 1 days)
     Dates: start: 19880227, end: 19880303
  2. GABEXATE MESILATE [Suspect]
     Indication: PROPHYLAXIS
     Dosage: 1-h drip infusion (200 mg, 2 in 1 days), Intraveneous (not otherwise specified)
     Route: 041

REACTIONS (3)
  - Pancreatitis acute [None]
  - Disseminated intravascular coagulation [None]
  - Ascites [None]
